FAERS Safety Report 4335574-2 (Version None)
Quarter: 2004Q2

REPORT INFORMATION
  Report Type: 
  Country: None (occurrence: None)
  Receive Date: 20040406
  Receipt Date: 20040322
  Transmission Date: 20050107
  Serious: Yes (Hospitalization, Other)
  Sender: FDA-Public Use
  Company Number: L04-USA-01090-01

PATIENT
  Age: 23 Year
  Sex: Male

DRUGS (5)
  1. CITALOPRAM [Suspect]
     Indication: DEPRESSION
     Dosage: 920 MG ONCE; PO
     Route: 048
     Dates: start: 20020513, end: 20020513
  2. CITALOPRAM [Suspect]
     Indication: SUICIDE ATTEMPT
     Dosage: 920 MG ONCE; PO
     Route: 048
     Dates: start: 20020513, end: 20020513
  3. CITALOPRAM [Suspect]
     Indication: DEPRESSION
     Dosage: UNK
     Route: 065
  4. CITALOPRAM [Suspect]
     Indication: SUICIDE ATTEMPT
     Dosage: UNK
     Route: 065
  5. TRAZODONE HCL [Concomitant]

REACTIONS (6)
  - ELECTROCARDIOGRAM QT CORRECTED INTERVAL PROLONGED [None]
  - GRAND MAL CONVULSION [None]
  - INTENTIONAL OVERDOSE [None]
  - SUICIDAL IDEATION [None]
  - SUICIDE ATTEMPT [None]
  - SUPRAVENTRICULAR TACHYCARDIA [None]
